FAERS Safety Report 12848122 (Version 1)
Quarter: 2016Q4

REPORT INFORMATION
  Report Type: Spontaneous
  Country: US (occurrence: US)
  Receive Date: 20161014
  Receipt Date: 20161014
  Transmission Date: 20170207
  Serious: No
  Sender: FDA-Public Use
  Company Number: US-JNJFOC-20160827908

PATIENT
  Sex: Female
  Weight: 63.05 kg

DRUGS (2)
  1. TYLENOL [Suspect]
     Active Substance: ACETAMINOPHEN
     Indication: BACK PAIN
     Route: 048
  2. TYLENOL [Suspect]
     Active Substance: ACETAMINOPHEN
     Indication: TOOTHACHE
     Route: 048

REACTIONS (5)
  - Product label issue [Unknown]
  - Overdose [Unknown]
  - Fatigue [Unknown]
  - Feeling abnormal [Unknown]
  - Drug effect incomplete [Unknown]
